FAERS Safety Report 7742634-2 (Version None)
Quarter: 2011Q3

REPORT INFORMATION
  Report Type: 
  Country: None (occurrence: None)
  Receive Date: 20110908
  Receipt Date: 20110908
  Transmission Date: 20111222
  Serious: Yes (Hospitalization)
  Sender: FDA-Public Use
  Company Number: None

PATIENT
  Sex: Male
  Weight: 65 kg

DRUGS (10)
  1. NEURONTIN [Concomitant]
  2. CENTRUM SILVER VITAMIN [Concomitant]
  3. DIOVAN [Concomitant]
  4. COMBIVENT INHALE [Concomitant]
  5. OXYGEN [Concomitant]
  6. SPIRIVA [Concomitant]
  7. ERLOTINIB HYDROCHLORIDE [Suspect]
     Indication: LUNG ADENOCARCINOMA
     Dosage: 100MG DAILY (ORAL)
     Route: 048
     Dates: start: 20110823, end: 20110907
  8. LAMOTIL [Concomitant]
  9. PF-02341066 [Suspect]
     Dosage: 150MG BID (ORAL)
     Route: 048
     Dates: start: 20110830, end: 20110907
  10. ASPIRIN [Concomitant]

REACTIONS (9)
  - DEHYDRATION [None]
  - FATIGUE [None]
  - APHAGIA [None]
  - BODY TEMPERATURE DECREASED [None]
  - ORAL MUCOSAL DISCOLOURATION [None]
  - BLOOD PRESSURE DECREASED [None]
  - HEART RATE DECREASED [None]
  - RASH [None]
  - DIARRHOEA [None]
